FAERS Safety Report 10345151 (Version 2)
Quarter: 2014Q4

REPORT INFORMATION
  Report Type: Spontaneous
  Country: IL (occurrence: IL)
  Receive Date: 20140728
  Receipt Date: 20141109
  Transmission Date: 20150528
  Serious: Yes (Death, Hospitalization, Other)
  Sender: FDA-Public Use
  Company Number: IL-PFIZER INC-2014207007

PATIENT
  Age: 75 Year
  Sex: Male

DRUGS (1)
  1. VIAGRA [Suspect]
     Active Substance: SILDENAFIL CITRATE
     Indication: ERECTILE DYSFUNCTION
     Dosage: A PILL
     Route: 048

REACTIONS (6)
  - Loss of consciousness [Unknown]
  - Seizure [Unknown]
  - Cardiac arrest [Fatal]
  - Ventricular fibrillation [Unknown]
  - Drug administration error [Fatal]
  - Respiratory distress [Unknown]
